FAERS Safety Report 7225374-8 (Version None)
Quarter: 2011Q1

REPORT INFORMATION
  Report Type: 
  Country: None (occurrence: None)
  Receive Date: 20110113
  Receipt Date: 20110103
  Transmission Date: 20110831
  Serious: Yes (Other)
  Sender: FDA-Public Use
  Company Number: US-NAPPMUNDI-DEU-2011-0006861

PATIENT
  Age: 14 Year
  Sex: Male

DRUGS (3)
  1. HYDROMORPHONE HCL (SIMILAR TO 19-892) [Suspect]
     Indication: PAIN
  2. LORAZEPAM [Concomitant]
  3. METHADONE [Suspect]
     Indication: PAIN

REACTIONS (1)
  - HYPERAESTHESIA [None]
